FAERS Safety Report 6223740-0 (Version None)
Quarter: 2009Q2

REPORT INFORMATION
  Report Type: 
  Country: None (occurrence: None)
  Receive Date: 20090611
  Receipt Date: 20090320
  Transmission Date: 20091009
  Serious: No
  Sender: FDA-Public Use
  Company Number: PR-ABBOTT-09P-131-0563622-00

PATIENT
  Sex: Female
  Weight: 48.124 kg

DRUGS (8)
  1. HUMIRA [Suspect]
     Indication: PSORIATIC ARTHROPATHY
     Route: 058
     Dates: start: 20080601, end: 20080901
  2. LISINOPRIL [Suspect]
     Indication: HYPERTENSION
     Route: 048
     Dates: start: 20080101
  3. PROVENTIL-HFA [Concomitant]
     Indication: ASTHMA
     Route: 055
  4. SINGULAIR [Concomitant]
     Indication: ASTHMA
     Dosage: AT BEDTIME
     Route: 048
  5. FOSAMAX [Concomitant]
     Indication: OSTEOPOROSIS
     Route: 048
  6. CELEBREX [Concomitant]
     Indication: PAIN
     Route: 048
  7. FOLIC ACID [Concomitant]
     Indication: VITAMIN SUPPLEMENTATION
     Route: 048
  8. ZANTAC [Concomitant]
     Indication: GASTRITIS
     Route: 048

REACTIONS (3)
  - ASTHMA [None]
  - BRONCHITIS CHRONIC [None]
  - EMPHYSEMA [None]
